FAERS Safety Report 23836839 (Version 4)
Quarter: 2024Q2

REPORT INFORMATION
  Report Type: Spontaneous
  Country: GB (occurrence: GB)
  Receive Date: 20240509
  Receipt Date: 20240521
  Transmission Date: 20240716
  Serious: Yes (Hospitalization)
  Sender: FDA-Public Use
  Company Number: GB-MYLANLABS-2024M1041041

PATIENT
  Age: 52 Year
  Sex: Male

DRUGS (8)
  1. CLOZARIL [Suspect]
     Active Substance: CLOZAPINE
     Indication: Schizophrenia
     Dosage: 700 MILLIGRAM, QD (ONCE DAILY)
     Route: 048
     Dates: start: 20010701
  2. CLOZARIL [Suspect]
     Active Substance: CLOZAPINE
     Dosage: 600 MILLIGRAM, QD (200MG MORNING, 400MG NIGHT)
     Route: 048
     Dates: start: 20010701
  3. CLOZARIL [Suspect]
     Active Substance: CLOZAPINE
     Dosage: 500 MILLIGRAM, QD (ONCE EVERY DAY, NIGHT)
     Route: 048
     Dates: start: 20240502
  4. PROMETHAZINE HYDROCHLORIDE [Concomitant]
     Active Substance: PROMETHAZINE HYDROCHLORIDE
     Dosage: 25 TO 50 MING PRN, MAX DOSE IN 24 HOURS 100 MG, MIN GAP BETWEEN ADMINISTRATIONS 6 HOURS
     Route: 048
     Dates: start: 20240427
  5. DIAZEPAM [Concomitant]
     Active Substance: DIAZEPAM
     Dosage: UNK, PRN -MAX DOSE IN 24 HOURS - 10MG, MIN GAP BETWEEN ADMINISTRATIONS 6 HOURS
     Route: 048
     Dates: start: 20240426
  6. METHADONE [Concomitant]
     Active Substance: METHADONE HYDROCHLORIDE
     Dosage: 40 MILLIGRAM, QD (ONCE EVERY DAY)
     Route: 048
     Dates: start: 20240426
  7. SERTRALINE [Concomitant]
     Active Substance: SERTRALINE HYDROCHLORIDE
     Dosage: 100 MILLIGRAM, QD (ONCE EVERY DAY)
     Route: 048
     Dates: start: 20240427
  8. METFORMIN [Concomitant]
     Active Substance: METFORMIN HYDROCHLORIDE
     Dosage: 500 MILLIGRAM, BID (TWICE A DAY)
     Route: 048
     Dates: start: 20240427

REACTIONS (6)
  - Depressed mood [Recovering/Resolving]
  - Suicidal ideation [Recovered/Resolved]
  - Schizophrenia [Unknown]
  - Salivary hypersecretion [Recovering/Resolving]
  - Sedation complication [Recovering/Resolving]
  - Antipsychotic drug level increased [Unknown]

NARRATIVE: CASE EVENT DATE: 20240415
